FAERS Safety Report 7754320-3 (Version None)
Quarter: 2011Q3

REPORT INFORMATION
  Report Type: 
  Country: None (occurrence: None)
  Receive Date: 20110915
  Receipt Date: 20110912
  Transmission Date: 20111222
  Serious: Yes (Other)
  Sender: FDA-Public Use
  Company Number: US-TEVA-300383USA

PATIENT
  Age: 73 Year
  Sex: Male

DRUGS (8)
  1. HORMONES NOS [Concomitant]
     Dates: start: 20100821
  2. PACLITAXEL [Suspect]
     Route: 041
     Dates: start: 20101222, end: 20101222
  3. DOCETAXEL [Suspect]
     Indication: PROSTATE CANCER
     Route: 042
     Dates: start: 20100822, end: 20100822
  4. DOCETAXEL [Suspect]
     Route: 042
     Dates: start: 20101222, end: 20101222
  5. PACLITAXEL [Suspect]
     Indication: PROSTATE CANCER
     Route: 041
     Dates: start: 20100822, end: 20100822
  6. LEUPROLIDE ACETATE [Concomitant]
  7. NEUPOGEN [Concomitant]
  8. BICALUTAMIDE [Concomitant]

REACTIONS (2)
  - NO THERAPEUTIC RESPONSE [None]
  - PROSTATIC SPECIFIC ANTIGEN INCREASED [None]
